FAERS Safety Report 8829116 (Version 1)
Quarter: 2012Q4

REPORT INFORMATION
  Report Type: 
  Country: US (occurrence: US)
  Receive Date: 20121009
  Receipt Date: 20121009
  Transmission Date: 20130627
  Serious: No
  Sender: FDA-Public Use
  Company Number: US-BIOGENIDEC-2012BI041454

PATIENT
  Age: 44 Year
  Sex: Female

DRUGS (1)
  1. AVONEX [Suspect]
     Indication: MULTIPLE SCLEROSIS
     Route: 030
     Dates: start: 20091125

REACTIONS (9)
  - Balance disorder [Not Recovered/Not Resolved]
  - Ear pruritus [Recovered/Resolved]
  - General symptom [Not Recovered/Not Resolved]
  - Gait disturbance [Not Recovered/Not Resolved]
  - Arthropathy [Not Recovered/Not Resolved]
  - Vertigo [Recovered/Resolved]
  - Hyperkeratosis [Recovered/Resolved]
  - Cyst [Recovered/Resolved]
  - Dizziness [Not Recovered/Not Resolved]
